FAERS Safety Report 7383228-0 (Version None)
Quarter: 2011Q1

REPORT INFORMATION
  Report Type: 
  Country: None (occurrence: None)
  Receive Date: 20110325
  Receipt Date: 20110325
  Transmission Date: 20110831
  Serious: Yes (Hospitalization)
  Sender: FDA-Public Use
  Company Number: None

PATIENT
  Age: 80 Year
  Sex: Female
  Weight: 61.5 kg

DRUGS (21)
  1. COUMADIN [Suspect]
     Indication: CORONARY ARTERY DISEASE
     Dosage: 5MG DAILY PO CHRONIC
     Route: 048
  2. NEURONTIN [Concomitant]
  3. ASPIRIN [Concomitant]
  4. ENALAPRIL MALEATE [Concomitant]
  5. PROBENECID [Concomitant]
  6. LOVENOX [Suspect]
     Indication: CORONARY ARTERY DISEASE
     Dosage: 600MG BID SQ RECENT
     Route: 058
  7. PRAVACHOL [Concomitant]
  8. FUROSEMIDE [Concomitant]
  9. JANUVIA [Concomitant]
  10. ASPIRIN [Suspect]
     Indication: CORONARY ARTERY DISEASE
     Dosage: 162 MG PO DAILY CHRONIC
     Route: 048
  11. IMDUR [Concomitant]
  12. NITROGLYCERIN [Concomitant]
  13. OMEPRAZOLE [Concomitant]
  14. VIT D [Concomitant]
  15. PERCOCET [Concomitant]
  16. CELEXA [Concomitant]
  17. COLCHICINE [Concomitant]
  18. LEVOTHYROXINE [Concomitant]
  19. ALLOPURINOL [Concomitant]
  20. METOPROLOL TARTRATE [Concomitant]
  21. PRANDIN [Concomitant]

REACTIONS (9)
  - INTERNATIONAL NORMALISED RATIO ABNORMAL [None]
  - GASTRIC ULCER [None]
  - RENAL FAILURE ACUTE [None]
  - GASTROINTESTINAL HAEMORRHAGE [None]
  - HYPERKALAEMIA [None]
  - SYNCOPE [None]
  - HAEMOGLOBIN DECREASED [None]
  - HYPONATRAEMIA [None]
  - TROPONIN INCREASED [None]
